FAERS Safety Report 5456423-5 (Version None)
Quarter: 2007Q3

REPORT INFORMATION
  Report Type: 
  Country: None (occurrence: None)
  Receive Date: 20070918
  Receipt Date: 20070905
  Transmission Date: 20080115
  Serious: Yes (Death)
  Sender: FDA-Public Use
  Company Number: US-TYCO HEALTHCARE/MALLINCKRODT-T200701071

PATIENT

DRUGS (4)
  1. METHYLIN [Suspect]
     Indication: FATIGUE
     Dates: start: 20060323
  2. METHADOSE [Suspect]
     Indication: PAIN
     Dosage: 30 MG, TID
     Dates: start: 20060323
  3. MORPHINE [Suspect]
     Indication: PAIN
     Dates: start: 20060323
  4. ANTIDEPRESSANTS [Suspect]
     Dates: start: 20060323

REACTIONS (4)
  - ACCIDENTAL OVERDOSE [None]
  - DEAFNESS [None]
  - NAUSEA [None]
  - VOMITING [None]
